FAERS Safety Report 5409752-5 (Version None)
Quarter: 2007Q3

REPORT INFORMATION
  Report Type: 
  Country: None (occurrence: None)
  Receive Date: 20070809
  Receipt Date: 20070801
  Transmission Date: 20080115
  Serious: Yes (Other)
  Sender: FDA-Public Use
  Company Number: B0482515A

PATIENT
  Age: 43 Year
  Sex: Male

DRUGS (3)
  1. AUGMENTIN '125' [Suspect]
     Indication: DRUG USE FOR UNKNOWN INDICATION
     Dosage: 6.6G PER DAY
     Route: 048
     Dates: start: 20051102, end: 20051104
  2. RISPERDAL [Suspect]
     Indication: HYPOCHONDRIASIS
     Route: 048
     Dates: start: 20051101
  3. PSYCHOPAX [Concomitant]
     Dosage: 20MG PER DAY
     Route: 048

REACTIONS (1)
  - PARKINSONISM [None]
